FAERS Safety Report 9424146 (Version 1)
Quarter: 2013Q3

REPORT INFORMATION
  Report Type: Report from Study
  Country: FR (occurrence: FR)
  Receive Date: 20130729
  Receipt Date: 20130729
  Transmission Date: 20140515
  Serious: Yes (Death, Other)
  Sender: FDA-Public Use
  Company Number: FR-009507513-1005FRA00110

PATIENT
  Age: 66 Year
  Sex: Male

DRUGS (9)
  1. SITAGLIPTIN PHOSPHATE [Suspect]
     Indication: TYPE 2 DIABETES MELLITUS
     Dosage: 100 MG, QD
     Route: 048
     Dates: start: 20100115, end: 20100322
  2. METFORMIN [Concomitant]
     Indication: TYPE 2 DIABETES MELLITUS
     Dosage: 1000 MG, TID
     Route: 048
     Dates: start: 20100116
  3. METFORMIN [Concomitant]
     Route: 048
     Dates: end: 20100115
  4. NOVO-NORM [Concomitant]
     Indication: TYPE 2 DIABETES MELLITUS
     Dosage: 3.5 MG, QD
     Dates: start: 20100116
  5. NOVO-NORM [Concomitant]
     Route: 048
     Dates: end: 20100115
  6. ACETAMINOPHEN\CAFFEINE\CODEINE [Suspect]
     Indication: HYPERTENSION
     Dosage: 1 UNK, UNK
     Dates: end: 20100613
  7. ESIDREX [Suspect]
     Indication: HYPERTENSION
     Dosage: 1 DF, UNK
     Dates: end: 20100613
  8. KARDEGIC [Suspect]
     Indication: CARDIOVASCULAR EVENT PROPHYLAXIS
     Dosage: 1 DF, UNK
     Dates: end: 20100613
  9. EFFERALGAN [Suspect]
     Indication: PAIN
     Dosage: 1 DF, QD
     Dates: end: 20100613

REACTIONS (1)
  - Metastases to liver [Fatal]
